FAERS Safety Report 8379021-2 (Version None)
Quarter: 2012Q2

REPORT INFORMATION
  Report Type: 
  Country: None (occurrence: None)
  Receive Date: 20120522
  Receipt Date: 20120522
  Transmission Date: 20120825
  Serious: Yes (Other)
  Sender: FDA-Public Use
  Company Number: None

PATIENT
  Age: 33 Year
  Sex: Male

DRUGS (1)
  1. OXCARBAZEPINE [Suspect]
     Indication: AFFECTIVE DISORDER
     Dosage: 900 MG TWICE DAILY PO
     Route: 048
     Dates: start: 20120326, end: 20120410

REACTIONS (3)
  - BLOOD SODIUM DECREASED [None]
  - BLOOD CHLORIDE DECREASED [None]
  - POLYDIPSIA [None]
